FAERS Safety Report 21907976 (Version 2)
Quarter: 2023Q1

REPORT INFORMATION
  Report Type: Report from Study
  Country: US (occurrence: US)
  Receive Date: 20230125
  Receipt Date: 20230227
  Transmission Date: 20230418
  Serious: Yes (Other)
  Sender: FDA-Public Use
  Company Number: US-ABBVIE-4233335

PATIENT
  Age: 61 Year
  Sex: Male
  Weight: 95.254 kg

DRUGS (12)
  1. SKYRIZI [Suspect]
     Active Substance: RISANKIZUMAB-RZAA
     Indication: Psoriasis
     Route: 058
     Dates: start: 20220824
  2. SKYRIZI [Suspect]
     Active Substance: RISANKIZUMAB-RZAA
     Indication: Psoriatic arthropathy
     Route: 058
     Dates: start: 20220921
  3. SKYRIZI [Suspect]
     Active Substance: RISANKIZUMAB-RZAA
     Route: 058
     Dates: start: 20221221
  4. Sow Palmetto [Concomitant]
     Indication: Product used for unknown indication
     Dosage: PILL, DAILY
     Dates: start: 2000
  5. CETIRIZINE HYDROCHLORIDE [Concomitant]
     Active Substance: CETIRIZINE HYDROCHLORIDE
     Indication: Seasonal allergy
     Dosage: PILL
     Route: 048
     Dates: start: 2000
  6. LEFLUNOMIDE [Concomitant]
     Active Substance: LEFLUNOMIDE
     Indication: Inflammation
     Dosage: DAILY
     Route: 048
     Dates: start: 20221018
  7. PREDNISONE [Concomitant]
     Active Substance: PREDNISONE
     Indication: Psoriasis
     Dosage: 15 MG PILL, DAILY
     Route: 048
     Dates: start: 2020
  8. METOPROLOL [Concomitant]
     Active Substance: METOPROLOL
     Indication: Cardiac disorder
     Route: 048
     Dates: start: 201109
  9. Glucosamine + CSA [Concomitant]
     Indication: Product used for unknown indication
     Dosage: PILL, DAILY
     Dates: start: 2000
  10. ASPIRIN [Concomitant]
     Active Substance: ASPIRIN
     Indication: Cardiac disorder
     Dosage: DAILY
     Route: 048
     Dates: start: 201109
  11. TERBINAFINE [Concomitant]
     Active Substance: TERBINAFINE
     Indication: Tinea infection
     Dosage: 250 MG PILL
     Route: 048
     Dates: start: 20221117, end: 20230209
  12. MOTION [Concomitant]
     Indication: Vertigo
     Dosage: PILL, AS NEEDED
     Dates: start: 2011

REACTIONS (1)
  - Malignant melanoma [Recovered/Resolved]

NARRATIVE: CASE EVENT DATE: 20221114
